FAERS Safety Report 5060394-3 (Version None)
Quarter: 2006Q3

REPORT INFORMATION
  Report Type: 
  Country: None (occurrence: None)
  Receive Date: 20060725
  Receipt Date: 20060710
  Transmission Date: 20061208
  Serious: Yes (Disabling)
  Sender: FDA-Public Use
  Company Number: GB-SP-2006-01811

PATIENT
  Age: 62 Year
  Sex: Male

DRUGS (9)
  1. IMMUCYST [Suspect]
     Indication: CARCINOMA IN SITU OF BLADDER
     Route: 043
     Dates: start: 20060703
  2. IMMUCYST [Suspect]
     Route: 043
     Dates: start: 20060703
  3. SIMVASTATIN [Concomitant]
  4. ATENOLOL [Concomitant]
     Indication: HYPERTENSION
  5. ASPIRIN [Concomitant]
  6. BENDROFLUMETHIAZIDE [Concomitant]
  7. OMEPRAZOLE [Concomitant]
     Indication: HIATUS HERNIA
  8. BEZAFIBRATE [Concomitant]
  9. ACETAMINOPHEN [Concomitant]
     Indication: ARTHRITIS

REACTIONS (4)
  - ARTHRALGIA [None]
  - ARTHRITIS [None]
  - CONJUNCTIVITIS [None]
  - JOINT SWELLING [None]
